FAERS Safety Report 9444283 (Version 1)
Quarter: 2013Q3

REPORT INFORMATION
  Report Type: Spontaneous
  Country: US (occurrence: None)
  Receive Date: 20130806
  Receipt Date: 20130806
  Transmission Date: 20140515
  Serious: Yes (Other)
  Sender: FDA-Public Use
  Company Number: None

PATIENT
  Age: 57 Year
  Sex: Female
  Weight: 57.7 kg

DRUGS (17)
  1. QUETIAPINE [Suspect]
     Indication: BIPOLAR DISORDER
     Dosage: 250 MG QHS ORAL
     Route: 048
     Dates: start: 20130708, end: 20130730
  2. OLANZAPINE [Concomitant]
  3. OXCARBAZEPINE [Concomitant]
  4. LEVOTHYROSINE [Concomitant]
  5. TOLTERODINE ER [Concomitant]
  6. CLONAZEPAM [Concomitant]
  7. LITHIUM [Concomitant]
  8. TRIHEXYPHENIDYL [Concomitant]
  9. ATENOLOL [Concomitant]
  10. SIMVASTATIN [Concomitant]
  11. DONEPEZIL [Concomitant]
  12. DIVALPROEX [Concomitant]
  13. LACTULOSE [Concomitant]
  14. DOCUSATE [Concomitant]
  15. MELATONIN [Concomitant]
  16. CALCIUM CARBONATE [Concomitant]
  17. MULTIVITAMIN WITH MINERALS [Concomitant]

REACTIONS (1)
  - Cataract [None]
